FAERS Safety Report 7970407-4 (Version None)
Quarter: 2011Q4

REPORT INFORMATION
  Report Type: 
  Country: None (occurrence: None)
  Receive Date: 20111212
  Receipt Date: 20111130
  Transmission Date: 20120403
  Serious: Yes (Hospitalization)
  Sender: FDA-Public Use
  Company Number: PHEH2011US010558

PATIENT
  Sex: Male

DRUGS (2)
  1. SANDOSTATIN LAR [Suspect]
     Indication: CARCINOID SYNDROME
     Dates: start: 20090819
  2. GLEEVEC [Suspect]
     Indication: GASTRIC CANCER
     Dosage: 400 MG DAILY
     Route: 048
     Dates: start: 20111101

REACTIONS (1)
  - URINARY TRACT INFECTION [None]
